FAERS Safety Report 21065401 (Version 2)
Quarter: 2022Q3

REPORT INFORMATION
  Report Type: Spontaneous
  Country: RU (occurrence: RU)
  Receive Date: 20220711
  Receipt Date: 20220721
  Transmission Date: 20221026
  Serious: Yes (Other)
  Sender: FDA-Public Use
  Company Number: RU-NOVARTISPH-NVSC2022RU155949

PATIENT
  Age: 58 Year
  Sex: Female

DRUGS (2)
  1. GEMCITABINE [Suspect]
     Active Substance: GEMCITABINE
     Indication: Cholangiocarcinoma
     Dosage: 1000 MG/M2, CYCLIC (ON DAYS 1 AND 8) (8 COURSES)
     Route: 065
     Dates: end: 201912
  2. OXALIPLATIN [Suspect]
     Active Substance: OXALIPLATIN
     Indication: Cholangiocarcinoma
     Dosage: 130 MG/M2, CYCLIC (ON DAY 1) (8 COURSES)
     Route: 065
     Dates: end: 201912

REACTIONS (3)
  - Polyneuropathy [Unknown]
  - Hepatitis toxic [Recovered/Resolved]
  - Product use in unapproved indication [Unknown]
